FAERS Safety Report 20629415 (Version 1)
Quarter: 2022Q1

REPORT INFORMATION
  Report Type: Other
  Country: PH (occurrence: None)
  Receive Date: 20220323
  Receipt Date: 20220323
  Transmission Date: 20220424
  Serious: Yes (Death)
  Sender: FDA-Public Use
  Company Number: PH-ROCHE-3052988

PATIENT
  Age: 75 Year
  Sex: Male

DRUGS (1)
  1. AVASTIN [Suspect]
     Active Substance: BEVACIZUMAB
     Indication: Colorectal cancer metastatic
     Dosage: NO
     Route: 042

REACTIONS (1)
  - Colon cancer [Fatal]

NARRATIVE: CASE EVENT DATE: 20211220
